FAERS Safety Report 19030110 (Version 1)
Quarter: 2021Q1

REPORT INFORMATION
  Report Type: Spontaneous
  Country: US (occurrence: US)
  Receive Date: 20210318
  Receipt Date: 20210318
  Transmission Date: 20210420
  Serious: Yes (Other)
  Sender: FDA-Public Use
  Company Number: None

PATIENT
  Age: 80 Year
  Sex: Female
  Weight: 118.9 kg

DRUGS (22)
  1. FOLIC ACID. [Concomitant]
     Active Substance: FOLIC ACID
  2. LEVOTHYROXINE. [Concomitant]
     Active Substance: LEVOTHYROXINE
  3. TRAZODONE [Concomitant]
     Active Substance: TRAZODONE HYDROCHLORIDE
  4. ACYCLOVIR. [Concomitant]
     Active Substance: ACYCLOVIR
  5. RIVAROXABAN [Concomitant]
     Active Substance: RIVAROXABAN
  6. ESCITALOPRAM [Concomitant]
     Active Substance: ESCITALOPRAM OXALATE
  7. BACTRIM [Concomitant]
     Active Substance: SULFAMETHOXAZOLE\TRIMETHOPRIM
  8. ADVAIR HFA [Concomitant]
     Active Substance: FLUTICASONE PROPIONATE\SALMETEROL XINAFOATE
  9. VITAMIN D3 [Concomitant]
     Active Substance: CHOLECALCIFEROL
  10. FAMOTIDINE. [Concomitant]
     Active Substance: FAMOTIDINE
  11. MYCOPHENOLATE [Concomitant]
     Active Substance: MYCOPHENOLIC ACID
  12. PANTOPRAZOLE [Concomitant]
     Active Substance: PANTOPRAZOLE
  13. GAMUNEX?C [Suspect]
     Active Substance: HUMAN IMMUNOGLOBULIN G
     Indication: INTERSTITIAL LUNG DISEASE
     Dosage: ?          OTHER FREQUENCY:MONTHLY;?
     Route: 042
  14. DILTIAZEM. [Concomitant]
     Active Substance: DILTIAZEM
  15. LIDOCAINE TOPICAL [Concomitant]
     Active Substance: LIDOCAINE
  16. LOSARTAN. [Concomitant]
     Active Substance: LOSARTAN
  17. NYSTATIN. [Concomitant]
     Active Substance: NYSTATIN
  18. FLUTICASONE NASAL [Concomitant]
     Active Substance: FLUTICASONE
  19. HYDROCORTISONE TOPICAL [Concomitant]
     Active Substance: HYDROCORTISONE
  20. HYDROCODONE?ACETAMINOPHEN [Concomitant]
     Active Substance: ACETAMINOPHEN\HYDROCODONE
  21. MULTIVITAMIN [Concomitant]
     Active Substance: VITAMINS
  22. PREDNISONE. [Concomitant]
     Active Substance: PREDNISONE

REACTIONS (2)
  - Urticaria [None]
  - Infusion related reaction [None]
